FAERS Safety Report 10720689 (Version 10)
Quarter: 2016Q4

REPORT INFORMATION
  Report Type: Spontaneous
  Country: AT (occurrence: AT)
  Receive Date: 20150119
  Receipt Date: 20161102
  Transmission Date: 20170206
  Serious: Yes (Other)
  Sender: FDA-Public Use
  Company Number: PHHY2013AT030089

PATIENT
  Age: 32 Year
  Sex: Female

DRUGS (1)
  1. GILENYA [Suspect]
     Active Substance: FINGOLIMOD HYDROCHLORIDE
     Indication: RELAPSING-REMITTING MULTIPLE SCLEROSIS
     Dosage: 0.5 MG, QD
     Route: 048
     Dates: start: 20110601

REACTIONS (3)
  - Hepatobiliary disease [Recovered/Resolved]
  - Hepatic function abnormal [Not Recovered/Not Resolved]
  - Hepatobiliary disease [Not Recovered/Not Resolved]

NARRATIVE: CASE EVENT DATE: 20121105
